FAERS Safety Report 13988591 (Version 4)
Quarter: 2017Q4

REPORT INFORMATION
  Report Type: Spontaneous
  Country: US (occurrence: US)
  Receive Date: 20170919
  Receipt Date: 20171214
  Transmission Date: 20180321
  Serious: No
  Sender: FDA-Public Use
  Company Number: US-ACTELION-A-NJ2017-159702

PATIENT
  Age: 66 Year
  Sex: Female

DRUGS (14)
  1. LASIX [Concomitant]
     Active Substance: FUROSEMIDE
     Dosage: 40 MG, BID
  2. LASIX [Concomitant]
     Active Substance: FUROSEMIDE
     Dosage: 20 MG, PRN
     Route: 048
  3. DILTIAZEM HCL [Concomitant]
     Active Substance: DILTIAZEM HYDROCHLORIDE
     Dosage: 120 MG, QD
     Route: 048
  4. ZYRTEC [Concomitant]
     Active Substance: CETIRIZINE HYDROCHLORIDE
     Dosage: 10 MG, QD
     Route: 048
  5. TRACLEER [Suspect]
     Active Substance: BOSENTAN
     Dosage: 125 MG, BID
     Route: 048
  6. FIBER [Concomitant]
     Active Substance: PSYLLIUM HUSK
     Dosage: BID TO TID, PRN
  7. COUMADIN [Concomitant]
     Active Substance: WARFARIN SODIUM
     Dosage: 5 MG, 1 TAB, M/W/T/SAT/SUN AND 2.5 ON TUES/FRI
     Route: 048
  8. OXYGEN. [Concomitant]
     Active Substance: OXYGEN
  9. TRACLEER [Suspect]
     Active Substance: BOSENTAN
     Indication: PULMONARY ARTERIAL HYPERTENSION
     Dosage: 62.5 MG, BID
     Route: 048
     Dates: start: 20170621
  10. DIAZEPAM. [Concomitant]
     Active Substance: DIAZEPAM
     Dosage: 5 MG, QD, PRN
     Route: 048
  11. TOPAMAX [Concomitant]
     Active Substance: TOPIRAMATE
     Dosage: 50 MG, BID
     Route: 048
  12. SILDENAFIL. [Concomitant]
     Active Substance: SILDENAFIL
  13. TOPAMAX [Concomitant]
     Active Substance: TOPIRAMATE
     Dosage: 25 MG, QD
  14. DOXYCYCLINE. [Concomitant]
     Active Substance: DOXYCYCLINE
     Dosage: 50 MG, QD
     Route: 048

REACTIONS (23)
  - Therapy non-responder [Unknown]
  - Abdominal distension [Unknown]
  - Dyspnoea exertional [Unknown]
  - Oxygen saturation decreased [Unknown]
  - Chest pain [Unknown]
  - Blood pressure increased [Unknown]
  - Acute left ventricular failure [Unknown]
  - Fatigue [Unknown]
  - Myalgia [Unknown]
  - Weight increased [Unknown]
  - Diarrhoea [Unknown]
  - Headache [Unknown]
  - Condition aggravated [Unknown]
  - Cough [Unknown]
  - Muscle spasms [Unknown]
  - Dyspnoea [Unknown]
  - Abdominal mass [Unknown]
  - International normalised ratio abnormal [Unknown]
  - Periarthritis [Unknown]
  - Pulmonary congestion [Unknown]
  - Arthralgia [Unknown]
  - Abdominal pain [Unknown]
  - Fluid overload [Unknown]

NARRATIVE: CASE EVENT DATE: 20171108
